FAERS Safety Report 4596200-0 (Version None)
Quarter: 2005Q1

REPORT INFORMATION
  Report Type: 
  Country: None (occurrence: None)
  Receive Date: 20050225
  Receipt Date: 20050217
  Transmission Date: 20050727
  Serious: Yes (Hospitalization)
  Sender: FDA-Public Use
  Company Number: MEDI-0002900

PATIENT
  Age: 16 Month
  Sex: Female
  Weight: 9.0719 kg

DRUGS (1)
  1. SYNAGIS (PLALIVIZUMAB) [Suspect]
     Indication: ANTIVIRAL PROPHYLAXIS
     Dosage: 1.5 ML, 1 IN 30 D, INTRAMUSCULAR
     Route: 030
     Dates: start: 20040901, end: 20050203

REACTIONS (6)
  - CONVULSION [None]
  - CYANOSIS [None]
  - DYSKINESIA [None]
  - EYE ROLLING [None]
  - OVERDOSE [None]
  - PYREXIA [None]
